FAERS Safety Report 11201148 (Version 1)
Quarter: 2015Q2

REPORT INFORMATION
  Report Type: Spontaneous
  Country: TR (occurrence: TR)
  Receive Date: 20150619
  Receipt Date: 20150619
  Transmission Date: 20150821
  Serious: Yes (Other)
  Sender: FDA-Public Use
  Company Number: TR-ASTRAZENECA-2015SE50923

PATIENT
  Age: 51 Year
  Sex: Male

DRUGS (4)
  1. ROSUVASTATIN [Concomitant]
     Active Substance: ROSUVASTATIN
     Route: 048
  2. METFORMINE [Concomitant]
     Active Substance: METFORMIN HYDROCHLORIDE
  3. SAXAGLIPTINE [Suspect]
     Active Substance: SAXAGLIPTIN
     Route: 048
  4. PREMIXED INSULIN [Concomitant]

REACTIONS (1)
  - Seronegative arthritis [Recovered/Resolved]
